APPROVED DRUG PRODUCT: CHLORPROPAMIDE
Active Ingredient: CHLORPROPAMIDE
Strength: 250MG
Dosage Form/Route: TABLET;ORAL
Application: A088919 | Product #001
Applicant: ANI PHARMACEUTICALS INC
Approved: Oct 16, 1984 | RLD: No | RS: No | Type: DISCN